FAERS Safety Report 8965531 (Version 1)
Quarter: 2012Q4

REPORT INFORMATION
  Report Type: Spontaneous
  Country: US (occurrence: None)
  Receive Date: 20121212
  Receipt Date: 20121212
  Transmission Date: 20130627
  Serious: Yes (Other)
  Sender: FDA-Public Use
  Company Number: None

PATIENT
  Age: 33 Year
  Sex: Female
  Weight: 70.76 kg

DRUGS (2)
  1. LEVETIRACETAM [Suspect]
     Indication: EPILEPSY
     Dosage: Levetiracetam (Lupin) BID orally 750mg
     Route: 048
     Dates: start: 201210, end: 201211
  2. LAMICTAL [Concomitant]

REACTIONS (2)
  - Convulsion [None]
  - Product substitution issue [None]
